FAERS Safety Report 15234925 (Version 1)
Quarter: 2018Q3

REPORT INFORMATION
  Report Type: Spontaneous
  Country: US (occurrence: US)
  Receive Date: 20180803
  Receipt Date: 20180803
  Transmission Date: 20181010
  Serious: Yes (Other)
  Sender: FDA-Public Use
  Company Number: US-ACCORD-065237

PATIENT
  Age: 48 Year
  Sex: Female

DRUGS (8)
  1. HERCEPTIN [Concomitant]
     Active Substance: TRASTUZUMAB
  2. ONDANSETRON [Concomitant]
     Active Substance: ONDANSETRON
  3. DOXORUBICIN [Suspect]
     Active Substance: DOXORUBICIN
     Indication: BREAST CANCER
  4. DEXAMETHASONE. [Concomitant]
     Active Substance: DEXAMETHASONE
  5. PARAPLATIN [Suspect]
     Active Substance: CARBOPLATIN
     Indication: BREAST CANCER
  6. NEULASTA [Concomitant]
     Active Substance: PEGFILGRASTIM
  7. DOCETAXEL ACCORD [Suspect]
     Active Substance: DOCETAXEL
     Indication: BREAST CANCER
     Dates: start: 20110503, end: 20110819
  8. PROCHLORPERAZINE. [Concomitant]
     Active Substance: PROCHLORPERAZINE

REACTIONS (1)
  - Alopecia [Not Recovered/Not Resolved]
